FAERS Safety Report 6764958-8 (Version None)
Quarter: 2010Q2

REPORT INFORMATION
  Report Type: 
  Country: None (occurrence: None)
  Receive Date: 20100609
  Receipt Date: 20100508
  Transmission Date: 20101027
  Serious: No
  Sender: FDA-Public Use
  Company Number: 2010011224

PATIENT
  Age: 9 Year
  Sex: Male
  Weight: 24.9478 kg

DRUGS (1)
  1. CHILDREN'S ZYRTEC ALLERGY [Suspect]
     Indication: DRUG USE FOR UNKNOWN INDICATION
     Dosage: 1/2 - 1 TEASPOONFUL AS NEEDED, ORAL
     Route: 048
     Dates: start: 20100305, end: 20100401

REACTIONS (2)
  - PRODUCT QUALITY ISSUE [None]
  - SLEEP TERROR [None]
